FAERS Safety Report 12125558 (Version 4)
Quarter: 2016Q2

REPORT INFORMATION
  Report Type: Spontaneous
  Country: IT (occurrence: IT)
  Receive Date: 20160229
  Receipt Date: 20160406
  Transmission Date: 20160815
  Serious: Yes (Other)
  Sender: FDA-Public Use
  Company Number: IT-ACCORD-037850

PATIENT
  Age: 66 Year
  Sex: Female
  Weight: 65 kg

DRUGS (6)
  1. FLUOROURACIL. [Suspect]
     Active Substance: FLUOROURACIL
     Indication: OESOPHAGEAL SQUAMOUS CELL CARCINOMA
     Dosage: ALSO REVIVED 650 MG IV BOLUS
     Route: 042
     Dates: start: 20150427
  2. OXALIPLATIN. [Suspect]
     Active Substance: OXALIPLATIN
     Indication: OESOPHAGEAL SQUAMOUS CELL CARCINOMA
     Route: 042
     Dates: start: 20150427
  3. LEDERFOLIN [Suspect]
     Active Substance: LEUCOVORIN CALCIUM
     Indication: OESOPHAGEAL SQUAMOUS CELL CARCINOMA
     Route: 042
     Dates: start: 20150427
  4. RANITIDINE. [Concomitant]
     Active Substance: RANITIDINE
     Dosage: 1 DF
     Route: 048
  5. ZYRTEC [Concomitant]
     Active Substance: CETIRIZINE HYDROCHLORIDE
     Route: 048
  6. TOTALIP [Concomitant]
     Active Substance: ATORVASTATIN
     Route: 048

REACTIONS (7)
  - Back pain [Unknown]
  - Odynophagia [Not Recovered/Not Resolved]
  - Off label use [Unknown]
  - Tracheobronchitis [Recovering/Resolving]
  - Anaemia [Recovering/Resolving]
  - Constipation [Recovering/Resolving]
  - Vomiting [Recovering/Resolving]

NARRATIVE: CASE EVENT DATE: 20150502
